FAERS Safety Report 4443226-3 (Version None)
Quarter: 2004Q3

REPORT INFORMATION
  Report Type: 
  Country: None (occurrence: None)
  Receive Date: 20040908
  Receipt Date: 20040827
  Transmission Date: 20050211
  Serious: Yes (Other)
  Sender: FDA-Public Use
  Company Number: US-BRISTOL-MYERS SQUIBB COMPANY-12689949

PATIENT
  Age: 92 Year
  Sex: Female

DRUGS (1)
  1. MITOMYCIN-C BULK POWDER [Suspect]
     Indication: CONJUNCTIVAL NEOPLASM
     Dosage: THREE 1-WEEK COURSES SEPARATED BY A 1-WEEK REST PERIOD
     Route: 047

REACTIONS (2)
  - CORNEAL EPITHELIUM DEFECT [None]
  - OFF LABEL USE [None]
